FAERS Safety Report 24856132 (Version 1)
Quarter: 2025Q1

REPORT INFORMATION
  Report Type: Spontaneous
  Country: GB (occurrence: GB)
  Receive Date: 20250117
  Receipt Date: 20250117
  Transmission Date: 20250409
  Serious: Yes (Hospitalization)
  Sender: TEVA
  Company Number: GB-ROCHE-10000174258

PATIENT
  Age: 3 Year
  Sex: Male
  Weight: 18 kg

DRUGS (23)
  1. HYDROCORTISONE [Suspect]
     Active Substance: HYDROCORTISONE
     Indication: Product used for unknown indication
     Route: 061
     Dates: start: 20240328
  2. HYDROCORTISONE [Suspect]
     Active Substance: HYDROCORTISONE
     Indication: Product used for unknown indication
     Route: 065
     Dates: start: 20240106
  3. HYDROCORTISONE [Suspect]
     Active Substance: HYDROCORTISONE
     Indication: Product used for unknown indication
     Route: 061
     Dates: start: 20231124
  4. HUMAN IMMUNOGLOBULIN G [Concomitant]
     Active Substance: HUMAN IMMUNOGLOBULIN G
     Indication: Product used for unknown indication
  5. TAMIFLU [Suspect]
     Active Substance: OSELTAMIVIR PHOSPHATE
     Indication: Product used for unknown indication
     Route: 048
  6. PENICILLIN V [Concomitant]
     Active Substance: PENICILLIN V
     Indication: Product used for unknown indication
  7. ONDANSETRON [Concomitant]
     Active Substance: ONDANSETRON
     Indication: Product used for unknown indication
     Dates: start: 20240704
  8. Metanium [Concomitant]
     Indication: Product used for unknown indication
  9. METHYLPREDNISOLONE [Concomitant]
     Active Substance: METHYLPREDNISOLONE
     Indication: Product used for unknown indication
     Dates: start: 20240402
  10. PREDNISOLONE [Concomitant]
     Active Substance: PREDNISOLONE
     Indication: Product used for unknown indication
     Dates: start: 20240410
  11. MICONAZOLE [Concomitant]
     Active Substance: MICONAZOLE
     Indication: Product used for unknown indication
     Dates: start: 20241107
  12. MELATONIN [Concomitant]
     Active Substance: MELATONIN
     Indication: Product used for unknown indication
  13. POSACONAZOLE [Concomitant]
     Active Substance: POSACONAZOLE
     Indication: Product used for unknown indication
     Dates: start: 20240125
  14. DERMOL [Concomitant]
     Active Substance: BENZALKONIUM CHLORIDE\CHLORHEXIDINE HYDROCHLORIDE\ISOPROPYL MYRISTATE\PARAFFIN
     Indication: Product used for unknown indication
  15. PENTAMIDINE ISETHIONATE [Concomitant]
     Active Substance: PENTAMIDINE ISETHIONATE
     Indication: Product used for unknown indication
  16. URSODIOL [Concomitant]
     Active Substance: URSODIOL
     Indication: Product used for unknown indication
     Dates: start: 20240523
  17. LANSOPRAZOLE [Concomitant]
     Active Substance: LANSOPRAZOLE
     Indication: Product used for unknown indication
  18. TRIMOVATE [Concomitant]
     Active Substance: CLOBETASONE BUTYRATE\NYSTATIN\OXYTETRACYCLINE CALCIUM
     Indication: Product used for unknown indication
  19. CYCLOSPORINE [Concomitant]
     Active Substance: CYCLOSPORINE
     Indication: Product used for unknown indication
     Dates: start: 20240912
  20. LEVETIRACETAM [Concomitant]
     Active Substance: LEVETIRACETAM
     Indication: Product used for unknown indication
     Dates: start: 20231123
  21. NEORAL [Concomitant]
     Active Substance: CYCLOSPORINE
     Indication: Product used for unknown indication
     Dates: start: 20231121
  22. Betamethasone; Fusidic acid [Concomitant]
     Indication: Product used for unknown indication
     Dates: start: 20240501
  23. AMLODIPINE [Concomitant]
     Active Substance: AMLODIPINE BESYLATE
     Indication: Product used for unknown indication
     Dates: start: 20240718

REACTIONS (1)
  - Pyrexia [Recovering/Resolving]

NARRATIVE: CASE EVENT DATE: 20241229
